FAERS Safety Report 7635909-9 (Version None)
Quarter: 2011Q3

REPORT INFORMATION
  Report Type: 
  Country: None (occurrence: None)
  Receive Date: 20110726
  Receipt Date: 20110713
  Transmission Date: 20111222
  Serious: Yes (Other)
  Sender: FDA-Public Use
  Company Number: CA-ELI_LILLY_AND_COMPANY-CA201107003341

PATIENT
  Sex: Female

DRUGS (10)
  1. ZYPREXA [Suspect]
     Dosage: 7.5 MG, UNK
  2. TOPAMAX [Concomitant]
  3. LAMICTAL [Concomitant]
  4. LORAZEPAM [Concomitant]
  5. ZYPREXA [Suspect]
     Dosage: 5 MG, QD
  6. ZYPREXA [Suspect]
     Dosage: 15 MG, UNK
  7. RISPERIDONE [Concomitant]
  8. ZYPREXA [Suspect]
     Indication: SCHIZOAFFECTIVE DISORDER
     Dosage: 1 DF, UNKNOWN
     Dates: start: 20030215
  9. ZYPREXA [Suspect]
     Dosage: 10 MG, QD
  10. ZYPREXA [Suspect]
     Dosage: 2.5 MG, QD

REACTIONS (6)
  - LIPIDS INCREASED [None]
  - DIABETES MELLITUS [None]
  - HAEMORRHAGE [None]
  - CHEILITIS [None]
  - WEIGHT INCREASED [None]
  - HYPERGLYCAEMIA [None]
